FAERS Safety Report 14498330 (Version 1)
Quarter: 2018Q1

REPORT INFORMATION
  Report Type: Spontaneous
  Country: US (occurrence: US)
  Receive Date: 20180206
  Receipt Date: 20180206
  Transmission Date: 20180509
  Serious: Yes (Other)
  Sender: FDA-Public Use
  Company Number: None

PATIENT

DRUGS (3)
  1. PIPERACILLIN AND TAZOBACTAM [Suspect]
     Active Substance: PIPERACILLIN SODIUM\TAZOBACTAM SODIUM
  2. RANITIDINE. [Suspect]
     Active Substance: RANITIDINE
  3. VANCOMYCIN [Concomitant]
     Active Substance: VANCOMYCIN

REACTIONS (6)
  - Blood pressure increased [None]
  - White blood cell count abnormal [None]
  - Neutrophil count abnormal [None]
  - Acute respiratory failure [None]
  - Blood albumin abnormal [None]
  - Clostridium test positive [None]
